FAERS Safety Report 7240843-2 (Version None)
Quarter: 2011Q1

REPORT INFORMATION
  Report Type: 
  Country: None (occurrence: None)
  Receive Date: 20110120
  Receipt Date: 20110120
  Transmission Date: 20110831
  Serious: No
  Sender: FDA-Public Use
  Company Number: None

PATIENT
  Sex: Female
  Weight: 72.5755 kg

DRUGS (1)
  1. BONIVA [Suspect]
     Dates: start: 20101211

REACTIONS (5)
  - COUGH [None]
  - HEADACHE [None]
  - UPPER-AIRWAY COUGH SYNDROME [None]
  - INFLUENZA LIKE ILLNESS [None]
  - OROPHARYNGEAL PAIN [None]
